FAERS Safety Report 6630942-8 (Version None)
Quarter: 2010Q1

REPORT INFORMATION
  Report Type: 
  Country: None (occurrence: None)
  Receive Date: 20100309
  Receipt Date: 20100305
  Transmission Date: 20100710
  Serious: Yes (Death, Hospitalization)
  Sender: FDA-Public Use
  Company Number: ALL1-2010-01034

PATIENT
  Age: 69 Year
  Sex: Male

DRUGS (2)
  1. FOSRENOL [Suspect]
     Indication: HYPERPHOSPHATAEMIA
     Dosage: 1000 MG, OTHER (PER MEAL), ORAL 500 MG OTHER (WITH SNACKS) ORAL
     Route: 048
     Dates: start: 20090101
  2. FOSRENOL [Suspect]
     Indication: HYPERPHOSPHATAEMIA
     Dosage: 1000 MG, OTHER (PER MEAL), ORAL 500 MG OTHER (WITH SNACKS) ORAL
     Route: 048
     Dates: start: 20090101

REACTIONS (1)
  - RENAL TRANSPLANT [None]
